FAERS Safety Report 20472383 (Version 1)
Quarter: 2022Q1

REPORT INFORMATION
  Report Type: Other
  Country: LT (occurrence: LT)
  Receive Date: 20220215
  Receipt Date: 20220215
  Transmission Date: 20220423
  Serious: Yes (Other)
  Sender: FDA-Public Use
  Company Number: None

PATIENT
  Age: 35 Year
  Sex: Female

DRUGS (2)
  1. PAROXETINE HYDROCHLORIDE [Suspect]
     Active Substance: PAROXETINE HYDROCHLORIDE
     Indication: Anxiety disorder
     Dosage: 20 MG (20 MG FOR 1 MONTH, 30 MG FOR 3 WEEKS)
     Route: 048
     Dates: start: 20210729, end: 20211203
  2. BROMAZEPAM [Concomitant]
     Active Substance: BROMAZEPAM
     Indication: Anxiety disorder
     Dosage: UNK UNK, PRN
     Route: 048

REACTIONS (3)
  - Arrhythmia [Recovered/Resolved]
  - Heavy menstrual bleeding [Recovered/Resolved]
  - Insomnia [Recovered/Resolved]

NARRATIVE: CASE EVENT DATE: 20210729
